FAERS Safety Report 20542068 (Version 1)
Quarter: 2022Q1

REPORT INFORMATION
  Report Type: Spontaneous
  Country: GB (occurrence: GB)
  Receive Date: 20220302
  Receipt Date: 20220302
  Transmission Date: 20220423
  Serious: Yes (Other)
  Sender: FDA-Public Use
  Company Number: None

PATIENT
  Age: 47 Year
  Sex: Female
  Weight: 54 kg

DRUGS (3)
  1. TRAMADOL HYDROCHLORIDE [Suspect]
     Active Substance: TRAMADOL HYDROCHLORIDE
     Indication: Arthralgia
     Dosage: 50 MILLIGRAM, 2/DAY
     Route: 048
     Dates: start: 20211117
  2. DESOGESTREL [Concomitant]
     Active Substance: DESOGESTREL
     Indication: Ill-defined disorder
     Dosage: UNK
     Route: 065
  3. ETORICOXIB [Concomitant]
     Active Substance: ETORICOXIB
     Indication: Ill-defined disorder
     Dosage: UNK
     Route: 065

REACTIONS (16)
  - Heart rate increased [Recovered/Resolved]
  - Muscle twitching [Recovered/Resolved]
  - Insomnia [Recovered/Resolved]
  - Dysuria [Recovered/Resolved]
  - Tinnitus [Recovered/Resolved]
  - Chest pain [Recovered/Resolved]
  - Restless legs syndrome [Recovered/Resolved]
  - Muscular weakness [Recovered/Resolved]
  - Balance disorder [Recovered/Resolved]
  - Anxiety [Recovered/Resolved]
  - Paranoia [Recovered/Resolved]
  - Confusional state [Recovered/Resolved]
  - Panic disorder [Recovered/Resolved]
  - Sleep apnoea syndrome [Recovered/Resolved]
  - Dyspnoea [Recovered/Resolved]
  - Hallucination [Recovered/Resolved]

NARRATIVE: CASE EVENT DATE: 20211119
